FAERS Safety Report 8760300 (Version 1)
Quarter: 2012Q4

REPORT INFORMATION
  Report Type: Spontaneous
  Country: US (occurrence: None)
  Receive Date: 20120829
  Receipt Date: 20120829
  Transmission Date: 20130627
  Serious: Yes (Hospitalization)
  Sender: FDA-Public Use
  Company Number: None

PATIENT
  Age: 84 Year
  Sex: Female

DRUGS (6)
  1. RIVAROXABAN [Suspect]
     Route: 048
  2. HCTZ [Concomitant]
  3. VICODIN [Concomitant]
  4. PANTOPRAZOLE [Concomitant]
  5. PRAVASTATIN [Concomitant]
  6. VALSARTAN [Concomitant]

REACTIONS (3)
  - Gastrointestinal haemorrhage [None]
  - Diverticulum [None]
  - Haematochezia [None]
